FAERS Safety Report 19912728 (Version 1)
Quarter: 2021Q4

REPORT INFORMATION
  Report Type: Report from Study
  Country: DE (occurrence: DE)
  Receive Date: 20211004
  Receipt Date: 20211004
  Transmission Date: 20220303
  Serious: Yes (Hospitalization)
  Sender: FDA-Public Use
  Company Number: DE-GLAXOSMITHKLINE-B0529858A

PATIENT
  Age: 67 Year
  Sex: Female
  Weight: 82 kg

DRUGS (8)
  1. CAPECITABINE [Suspect]
     Active Substance: CAPECITABINE
     Indication: Breast cancer metastatic
     Dosage: 2000 MILLIGRAM, QD
     Route: 048
     Dates: start: 20080326, end: 20080622
  2. CAPECITABINE [Suspect]
     Active Substance: CAPECITABINE
     Indication: Breast cancer
     Dosage: 2500 MILLIGRAM
     Route: 048
     Dates: start: 20150210
  3. CAPECITABINE [Suspect]
     Active Substance: CAPECITABINE
     Dosage: 2500 MILLIGRAM
     Route: 048
     Dates: start: 20150414
  4. CAPECITABINE [Suspect]
     Active Substance: CAPECITABINE
     Dosage: 1000 MILLIGRAM
     Route: 048
     Dates: start: 20150527
  5. CAPECITABINE [Suspect]
     Active Substance: CAPECITABINE
     Dosage: 300 MILLIGRAM
     Route: 048
  6. BEVACIZUMAB [Suspect]
     Active Substance: BEVACIZUMAB
     Indication: Breast cancer
     Dosage: 1200 MILLIGRAM
     Route: 042
     Dates: start: 20150210, end: 20150527
  7. BEVACIZUMAB [Suspect]
     Active Substance: BEVACIZUMAB
     Dosage: 1200 MILLIGRAM
  8. TYKERB [Suspect]
     Active Substance: LAPATINIB DITOSYLATE
     Indication: Breast cancer metastatic
     Dosage: 1250 MILLIGRAM, QD
     Route: 048
     Dates: start: 20080326, end: 20080622

REACTIONS (3)
  - General physical health deterioration [Recovered/Resolved]
  - Palmar-plantar erythrodysaesthesia syndrome [Recovered/Resolved]
  - Conjunctivitis [Recovered/Resolved]

NARRATIVE: CASE EVENT DATE: 20080513
